FAERS Safety Report 5141847-6 (Version None)
Quarter: 2006Q4

REPORT INFORMATION
  Report Type: 
  Country: None (occurrence: None)
  Receive Date: 20061027
  Receipt Date: 20061010
  Transmission Date: 20070319
  Serious: Yes (Hospitalization)
  Sender: FDA-Public Use
  Company Number: CO200608003432

PATIENT
  Age: 17 Year
  Sex: Female

DRUGS (5)
  1. CYMBALTA [Suspect]
     Indication: MAJOR DEPRESSION
     Dosage: 60 MG DAILY (1/D) ORAL
     Route: 048
  2. OMEPRAZOLE [Concomitant]
  3. MYLANTA (ALUMINUM HYDROCHLORIDE) [Concomitant]
  4. MAGNESIUM HYDROXIDE, SIMETICONE [Concomitant]
  5. ZOPICLONE [Concomitant]

REACTIONS (7)
  - ALCOHOL USE [None]
  - ANAEMIA [None]
  - BRAIN OEDEMA [None]
  - DUODENAL ULCER HAEMORRHAGE [None]
  - INFLUENZA [None]
  - INSOMNIA [None]
  - SYNCOPE [None]
